FAERS Safety Report 6220153-2 (Version None)
Quarter: 2009Q2

REPORT INFORMATION
  Report Type: 
  Country: None (occurrence: None)
  Receive Date: 20090609
  Receipt Date: 20090528
  Transmission Date: 20091009
  Serious: Yes (Hospitalization)
  Sender: FDA-Public Use
  Company Number: JP-ABBOTT-09P-087-0578506-00

PATIENT
  Age: 76 Year
  Sex: Male

DRUGS (6)
  1. LEUPLIN SR FOR INJECTION 11.25 MG [Suspect]
     Indication: PROSTATE CANCER STAGE II
     Route: 058
     Dates: start: 20080212, end: 20080805
  2. LEUPLIN SR FOR INJECTION 11.25 MG [Suspect]
     Route: 058
     Dates: start: 20090127
  3. LEUPLIN SR FOR INJECTION 11.25 MG [Suspect]
     Dates: start: 20070801, end: 20080115
  4. CASODEX [Concomitant]
     Indication: PROSTATE CANCER STAGE II
     Dates: end: 20090127
  5. URIEF [Concomitant]
     Indication: BENIGN PROSTATIC HYPERPLASIA
     Route: 048
     Dates: end: 20090127
  6. TOLTERODINE TARTRATE [Concomitant]
     Indication: HYPERTONIC BLADDER
     Dosage: DAILY
     Route: 048

REACTIONS (1)
  - FALL [None]
